FAERS Safety Report 9121034 (Version 6)
Quarter: 2014Q2

REPORT INFORMATION
  Report Type: Report from Study
  Country: US (occurrence: US)
  Receive Date: 20130226
  Receipt Date: 20140512
  Transmission Date: 20141212
  Serious: Yes (Death, Life-Threatening, Hospitalization)
  Sender: FDA-Public Use
  Company Number: US-ROCHE-1192951

PATIENT
  Age: 62 Year
  Sex: Female
  Weight: 88 kg

DRUGS (3)
  1. PEG-INTERFERON ALFA 2A [Suspect]
     Indication: CHRONIC HEPATITIS C
     Dosage: DOSE :180 MCG, RECENT DOSE ON : 03/FEB/2013
     Route: 065
     Dates: start: 20120923
  2. RIBAVIRIN [Suspect]
     Indication: CHRONIC HEPATITIS C
     Dosage: DOSE: 1000MG, MOST RECENT DOSE ON : 04/FEB/2013
     Route: 065
     Dates: start: 20120923
  3. BOCEPREVIR [Suspect]
     Indication: CHRONIC HEPATITIS C
     Dosage: DOSE:2400MG, MOST RECENT DOSE ON : 04/FEB/2013
     Route: 065
     Dates: start: 20121021

REACTIONS (6)
  - Urinary tract infection [Fatal]
  - Hypotension [Fatal]
  - Hypophagia [Fatal]
  - Hypoglycaemia [Fatal]
  - Multi-organ failure [Fatal]
  - Urine output decreased [Fatal]
